FAERS Safety Report 12705618 (Version 3)
Quarter: 2017Q1

REPORT INFORMATION
  Report Type: Spontaneous
  Country: US (occurrence: US)
  Receive Date: 20160901
  Receipt Date: 20170127
  Transmission Date: 20170428
  Serious: Yes (Death, Hospitalization, Other)
  Sender: FDA-Public Use
  Company Number: US-TEVA-687768USA

PATIENT
  Age: 12 Year
  Sex: Male
  Weight: 68.1 kg

DRUGS (12)
  1. SALBUTAMOL SULFATE [Suspect]
     Active Substance: ALBUTEROL SULFATE
     Indication: ASTHMA
     Route: 065
     Dates: start: 199609
  2. TERBUTALINE [Suspect]
     Active Substance: TERBUTALINE
     Route: 065
  3. IBUPROFEN. [Suspect]
     Active Substance: IBUPROFEN
     Route: 065
  4. SUCRALFATE. [Suspect]
     Active Substance: SUCRALFATE
     Route: 065
  5. LASIX [Suspect]
     Active Substance: FUROSEMIDE
     Route: 065
  6. PROVENTIL [Suspect]
     Active Substance: ALBUTEROL
     Indication: ASTHMA
     Route: 065
     Dates: start: 199609
  7. CEFUROXIME. [Suspect]
     Active Substance: CEFUROXIME
     Route: 065
  8. DIAMOX SEQUELS [Suspect]
     Active Substance: ACETAZOLAMIDE
     Indication: PYREXIA
     Route: 065
  9. SOLU-MEDROL [Suspect]
     Active Substance: METHYLPREDNISOLONE SODIUM SUCCINATE
     Indication: ASTHMA
     Route: 065
     Dates: start: 19970402
  10. FENTANYL. [Suspect]
     Active Substance: FENTANYL
     Route: 065
  11. TYLENOL [Suspect]
     Active Substance: ACETAMINOPHEN
     Route: 065
  12. CEFTAZIDIME. [Suspect]
     Active Substance: CEFTAZIDIME
     Route: 065

REACTIONS (27)
  - Septic shock [Fatal]
  - Retroperitoneal haemorrhage [Fatal]
  - Multiple organ dysfunction syndrome [Fatal]
  - Disseminated intravascular coagulation [Fatal]
  - Pyrexia [Unknown]
  - Lactic acidosis [Unknown]
  - Respiratory failure [Fatal]
  - Sepsis [Fatal]
  - Renal necrosis [Fatal]
  - Hepatic failure [Fatal]
  - Thrombosis [Fatal]
  - Peritoneal haemorrhage [Fatal]
  - Erosive duodenitis [Unknown]
  - Cardiogenic shock [Fatal]
  - Renal failure [Fatal]
  - Bronchial hyperreactivity [Fatal]
  - Dyspnoea [Unknown]
  - Oedema [Unknown]
  - Ileus paralytic [Fatal]
  - Status asthmaticus [Fatal]
  - Hepatic necrosis [Fatal]
  - Haematemesis [Unknown]
  - Gastrointestinal haemorrhage [Fatal]
  - Pulmonary haemorrhage [Fatal]
  - Wheezing [Unknown]
  - Gastrointestinal necrosis [Fatal]
  - Hypotension [Unknown]

NARRATIVE: CASE EVENT DATE: 1997
